FAERS Safety Report 10734688 (Version 2)
Quarter: 2015Q2

REPORT INFORMATION
  Report Type: Report from Study
  Country: US (occurrence: US)
  Receive Date: 20150123
  Receipt Date: 20150403
  Transmission Date: 20150821
  Serious: Yes (Other)
  Sender: FDA-Public Use
  Company Number: US-GILEAD-2015-0133450

PATIENT
  Age: 77 Year
  Sex: Male

DRUGS (1)
  1. AMBRISENTAN [Suspect]
     Active Substance: AMBRISENTAN
     Indication: PRODUCT USED FOR UNKNOWN INDICATION
     Dosage: 5 MG, QD
     Route: 065
     Dates: start: 20141017

REACTIONS (6)
  - Nasopharyngitis [Unknown]
  - Oxygen saturation decreased [Unknown]
  - Oxygen consumption increased [Unknown]
  - Unevaluable event [Unknown]
  - Constipation [Unknown]
  - Drug ineffective [Unknown]
